FAERS Safety Report 4597949-6 (Version None)
Quarter: 2005Q1

REPORT INFORMATION
  Report Type: 
  Country: None (occurrence: None)
  Receive Date: 20050301
  Receipt Date: 20050217
  Transmission Date: 20050727
  Serious: Yes (Other)
  Sender: FDA-Public Use
  Company Number: AZAUS200400218

PATIENT
  Age: 74 Year
  Sex: Male
  Weight: 60.3284 kg

DRUGS (7)
  1. VIDAZA [Suspect]
     Indication: MYELODYSPLASTIC SYNDROME
     Dosage: 75 MG/M2 (125 MG, DAILY X 7 DAYS), SUBCUTANEOUS
     Route: 058
     Dates: start: 20041018, end: 20041024
  2. FOLIC ACID [Concomitant]
  3. ASPIRIN [Concomitant]
  4. MULTIVITAMIN WITH IRON (MULTIVITAMINS AND IRON) [Concomitant]
  5. SYNTHROID [Concomitant]
  6. LIPITOR [Concomitant]
  7. COMPAZINE [Concomitant]

REACTIONS (2)
  - BLOOD BILIRUBIN INCREASED [None]
  - BLOOD UREA INCREASED [None]
